FAERS Safety Report 19776824 (Version 5)
Quarter: 2021Q4

REPORT INFORMATION
  Report Type: Spontaneous
  Country: US (occurrence: US)
  Receive Date: 20210902
  Receipt Date: 20211207
  Transmission Date: 20220303
  Serious: Yes (Death, Hospitalization, Other)
  Sender: FDA-Public Use
  Company Number: US-GSKCCFUS-CASE-01148305_AE-67542

PATIENT
  Sex: Female

DRUGS (3)
  1. NUCALA [Suspect]
     Active Substance: MEPOLIZUMAB
     Indication: Product used for unknown indication
     Dosage: UNK
  2. NUCALA [Suspect]
     Active Substance: MEPOLIZUMAB
     Indication: Asthma
     Dosage: UNK
  3. NUCALA [Suspect]
     Active Substance: MEPOLIZUMAB
     Indication: Product used for unknown indication
     Dosage: 100 MG, Z, UNDER THE SKIN EVERY 4 WEEKS
     Route: 058

REACTIONS (7)
  - COVID-19 [Fatal]
  - Bronchitis [Unknown]
  - Renal failure [Unknown]
  - Glaucoma [Unknown]
  - Eye operation [Unknown]
  - Suspected COVID-19 [Unknown]
  - Inappropriate schedule of product administration [Unknown]
